FAERS Safety Report 10906693 (Version 1)
Quarter: 2015Q1

REPORT INFORMATION
  Report Type: Spontaneous
  Country: US (occurrence: None)
  Receive Date: 20150309
  Receipt Date: 20150309
  Transmission Date: 20150721
  Serious: Yes (Hospitalization)
  Sender: FDA-Public Use
  Company Number: CPL-2015-0001

PATIENT
  Age: 26 Year
  Sex: Male

DRUGS (2)
  1. LIOTHYRONINE SODIUM. [Suspect]
     Active Substance: LIOTHYRONINE SODIUM
     Route: 048
  2. LIOTHYRONINE SODIUM. [Suspect]
     Active Substance: LIOTHYRONINE SODIUM
     Indication: WEIGHT CONTROL
     Route: 048

REACTIONS (2)
  - Thyrotoxic periodic paralysis [None]
  - Intentional product misuse [None]
